FAERS Safety Report 4663893-9 (Version None)
Quarter: 2005Q2

REPORT INFORMATION
  Report Type: 
  Country: None (occurrence: None)
  Receive Date: 20050516
  Receipt Date: 20050509
  Transmission Date: 20051028
  Serious: Yes (Hospitalization, Disabling, Other)
  Sender: FDA-Public Use
  Company Number: 2002-05-0105

PATIENT
  Age: 59 Year
  Sex: Male
  Weight: 78.4723 kg

DRUGS (13)
  1. PEG-INTRON [Suspect]
     Indication: HEPATITIS C
     Dosage: 96 MCG QWK SUBCUTANEOUS
     Route: 058
     Dates: start: 20011105, end: 20020418
  2. REBETOL [Suspect]
     Indication: HEPATITIS C
     Dosage: 1000 MG QD ORAL
     Route: 048
     Dates: start: 20010808, end: 20020420
  3. INTRON A [Suspect]
     Indication: HEPATITIS C
     Dosage: 3 MU TIW
     Dates: start: 20010808, end: 20011101
  4. FLONASE [Concomitant]
  5. FLOVENT [Concomitant]
  6. SEREVENT [Concomitant]
  7. CLARITIN [Concomitant]
  8. KLONOPIN [Concomitant]
  9. ALBUTEROL PRN [Concomitant]
  10. BUSPAR [Concomitant]
  11. REMERON [Concomitant]
  12. FLOMAX [Concomitant]
  13. LIBRAX [Concomitant]

REACTIONS (14)
  - ABDOMINAL PAIN [None]
  - ANXIETY [None]
  - ATRIAL FIBRILLATION [None]
  - BLINDNESS [None]
  - DEPRESSED MOOD [None]
  - FAMILY STRESS [None]
  - KERATITIS [None]
  - MACULAR DEGENERATION [None]
  - OPTIC ATROPHY [None]
  - OPTIC NEURITIS [None]
  - PAPILLOEDEMA [None]
  - SYNCOPE [None]
  - TACHYCARDIA [None]
  - WEIGHT DECREASED [None]
